FAERS Safety Report 8209262-6 (Version None)
Quarter: 2012Q1

REPORT INFORMATION
  Report Type: 
  Country: None (occurrence: None)
  Receive Date: 20120314
  Receipt Date: 20120306
  Transmission Date: 20120608
  Serious: Yes (Hospitalization, Other)
  Sender: FDA-Public Use
  Company Number: JP-VERTEX PHARMACEUTICALS INC.-AE-2012-001521

PATIENT
  Age: 55 Year
  Sex: Male

DRUGS (13)
  1. TELAVIC (TELAPREVIR) [Suspect]
     Indication: HEPATITIS C
     Route: 048
     Dates: start: 20120111, end: 20120126
  2. JANUVIA [Concomitant]
     Route: 048
  3. LOSARTAN POTASSIUM [Concomitant]
     Route: 048
  4. REBETOL [Concomitant]
     Route: 048
     Dates: start: 20120111, end: 20120126
  5. PEG-INTRON [Concomitant]
     Indication: HEPATITIS C
     Route: 058
     Dates: start: 20120111, end: 20120125
  6. LIVALO [Concomitant]
     Route: 048
  7. KETOBUN [Concomitant]
     Route: 048
  8. AMOBAN [Concomitant]
     Route: 048
  9. XYZAL [Concomitant]
     Route: 048
     Dates: start: 20120120
  10. XYZAL [Concomitant]
     Route: 048
     Dates: start: 20120120
  11. DEPAS [Concomitant]
     Route: 048
  12. ALLOPURINOL [Concomitant]
     Route: 048
     Dates: start: 20120127
  13. SELBEX [Concomitant]
     Route: 048
     Dates: start: 20120120

REACTIONS (4)
  - THROMBOCYTOPENIA [None]
  - NEUTROPENIA [None]
  - LEUKOPENIA [None]
  - PYREXIA [None]
